FAERS Safety Report 6758597-2 (Version None)
Quarter: 2010Q2

REPORT INFORMATION
  Report Type: 
  Country: None (occurrence: None)
  Receive Date: 20100607
  Receipt Date: 20100603
  Transmission Date: 20101027
  Serious: Yes (Death)
  Sender: FDA-Public Use
  Company Number: CO-ROCHE-707316

PATIENT
  Sex: Male

DRUGS (2)
  1. XELODA [Suspect]
     Route: 048
     Dates: start: 20091113, end: 20100404
  2. MORPHINE [Concomitant]
     Indication: PAIN
     Route: 048

REACTIONS (1)
  - DISEASE PROGRESSION [None]
